FAERS Safety Report 8258605-6 (Version None)
Quarter: 2012Q2

REPORT INFORMATION
  Report Type: 
  Country: None (occurrence: None)
  Receive Date: 20120404
  Receipt Date: 20120329
  Transmission Date: 20120825
  Serious: Yes (Life-Threatening, Hospitalization)
  Sender: FDA-Public Use
  Company Number: DE-BRISTOL-MYERS SQUIBB COMPANY-16313355

PATIENT
  Age: 5 Decade
  Sex: Female

DRUGS (2)
  1. ABILIFY [Suspect]
     Dosage: 1DF = DOSE TAKEN GREATER THAN 300MG ON 2DEC11-2DEC11,7.5 MG ON JAN10
     Route: 048
     Dates: start: 20100101, end: 20111202
  2. ZYPREXA [Concomitant]
     Dosage: 1DF = ABOUT 50MG TAB
     Route: 065
     Dates: start: 20111202, end: 20111202

REACTIONS (4)
  - SUICIDE ATTEMPT [None]
  - RENAL FAILURE [None]
  - HAEMOGLOBIN DECREASED [None]
  - INTENTIONAL OVERDOSE [None]
